FAERS Safety Report 13640074 (Version 1)
Quarter: 2017Q2

REPORT INFORMATION
  Report Type: Spontaneous
  Country: US (occurrence: US)
  Receive Date: 20170609
  Receipt Date: 20170609
  Transmission Date: 20170830
  Serious: No
  Sender: FDA-Public Use
  Company Number: US-ROCHE-1562446

PATIENT
  Age: 11 Year
  Sex: Female

DRUGS (3)
  1. TRILEPTAL [Concomitant]
     Active Substance: OXCARBAZEPINE
  2. KEPPRA [Concomitant]
     Active Substance: LEVETIRACETAM
  3. KLONOPIN [Suspect]
     Active Substance: CLONAZEPAM
     Indication: PARTIAL SEIZURES
     Route: 065

REACTIONS (1)
  - Depression [Unknown]
